FAERS Safety Report 21406112 (Version 2)
Quarter: 2022Q4

REPORT INFORMATION
  Report Type: Report from Study
  Country: GT (occurrence: GT)
  Receive Date: 20221004
  Receipt Date: 20221129
  Transmission Date: 20230113
  Serious: Yes (Life-Threatening)
  Sender: FDA-Public Use
  Company Number: GT-NOVARTISPH-NVSC2022GT063343

PATIENT
  Age: 45 Year
  Sex: Male
  Weight: 88 kg

DRUGS (4)
  1. SECUKINUMAB [Suspect]
     Active Substance: SECUKINUMAB
     Indication: Psoriasis
     Dosage: 300 MG, QMO
     Route: 058
     Dates: start: 20201023
  2. SECUKINUMAB [Suspect]
     Active Substance: SECUKINUMAB
     Dosage: 150 MG, (EVERY 25DAY)
     Route: 058
  3. SECUKINUMAB [Suspect]
     Active Substance: SECUKINUMAB
     Dosage: 150 MG, QMO
     Route: 058
     Dates: start: 2020
  4. SECUKINUMAB [Suspect]
     Active Substance: SECUKINUMAB
     Dosage: 300 MG, QMO
     Route: 058

REACTIONS (13)
  - Platelet count decreased [Unknown]
  - Decreased immune responsiveness [Unknown]
  - Pain [Unknown]
  - Rash [Unknown]
  - Throat irritation [Unknown]
  - Oropharyngeal discomfort [Unknown]
  - Oropharyngeal pain [Unknown]
  - COVID-19 [Unknown]
  - Post-acute COVID-19 syndrome [Unknown]
  - Dengue fever [Unknown]
  - Influenza [Unknown]
  - Product administration error [Unknown]
  - Inappropriate schedule of product administration [Unknown]

NARRATIVE: CASE EVENT DATE: 20221124
